FAERS Safety Report 23073743 (Version 1)
Quarter: 2023Q4

REPORT INFORMATION
  Report Type: Spontaneous
  Country: US (occurrence: None)
  Receive Date: 20231013
  Receipt Date: 20231013
  Transmission Date: 20240110
  Serious: No
  Sender: FDA-Public Use
  Company Number: None

PATIENT
  Age: 69 Year

DRUGS (2)
  1. AMBRISENTAN [Suspect]
     Active Substance: AMBRISENTAN
  2. LETAIRIS [Suspect]
     Active Substance: AMBRISENTAN

REACTIONS (2)
  - Dyspnoea [None]
  - Oxygen consumption increased [None]

NARRATIVE: CASE EVENT DATE: 20231013
